FAERS Safety Report 18816939 (Version 1)
Quarter: 2021Q1

REPORT INFORMATION
  Report Type: Spontaneous
  Country: FR (occurrence: FR)
  Receive Date: 20210201
  Receipt Date: 20210201
  Transmission Date: 20210419
  Serious: Yes (Hospitalization, Other)
  Sender: FDA-Public Use
  Company Number: FR-BRISTOL-MYERS SQUIBB COMPANY-BMS-2021-007151

PATIENT
  Age: 82 Year
  Sex: Female
  Weight: 60 kg

DRUGS (2)
  1. AZACTAM [Suspect]
     Active Substance: AZTREONAM
     Indication: PYELONEPHRITIS ACUTE
     Dosage: 3 GRAM
     Route: 042
     Dates: start: 20201226, end: 20210101
  2. VANCOMYCINE MYLAN [VANCOMYCIN HYDROCHLORIDE] [Suspect]
     Active Substance: VANCOMYCIN HYDROCHLORIDE
     Indication: PYELONEPHRITIS ACUTE
     Dosage: 1800 MILLIGRAM
     Route: 042
     Dates: start: 20201226, end: 20210101

REACTIONS (2)
  - Hepatocellular injury [Recovering/Resolving]
  - Cholestasis [Recovering/Resolving]

NARRATIVE: CASE EVENT DATE: 20201230
